FAERS Safety Report 21978019 (Version 2)
Quarter: 2023Q2

REPORT INFORMATION
  Report Type: Spontaneous
  Country: US (occurrence: US)
  Receive Date: 20230210
  Receipt Date: 20230410
  Transmission Date: 20230721
  Serious: Yes (Death, Other)
  Sender: FDA-Public Use
  Company Number: US-PFIZER INC-PV202300025219

PATIENT
  Age: 67 Year
  Sex: Female

DRUGS (1)
  1. INLYTA [Suspect]
     Active Substance: AXITINIB
     Dosage: 5 MG

REACTIONS (4)
  - Death [Fatal]
  - Nausea [Unknown]
  - Vomiting [Unknown]
  - Blood pressure increased [Unknown]
